FAERS Safety Report 12256734 (Version 3)
Quarter: 2019Q4

REPORT INFORMATION
  Report Type: Spontaneous
  Country: US (occurrence: US)
  Receive Date: 20160412
  Receipt Date: 20191021
  Transmission Date: 20200122
  Serious: Yes (Other)
  Sender: FDA-Public Use
  Company Number: US-PFIZER INC-2016202228

PATIENT
  Age: 54 Year
  Sex: Male

DRUGS (6)
  1. VIAGRA [Suspect]
     Active Substance: SILDENAFIL CITRATE
     Dosage: 50 MG (100 MG TABLETS- TAKE HALF), APPROXIMATELY 2 TIMES PER WEEK ON AVERAGE
     Route: 048
     Dates: start: 200608, end: 2007
  2. FISH OIL [Concomitant]
     Active Substance: FISH OIL
     Dosage: UNK
     Dates: start: 2007
  3. VIAGRA [Suspect]
     Active Substance: SILDENAFIL CITRATE
     Dosage: 50 MG TABLETS, APPROXIMATELY 2 TIMES PER WEEK ON AVERAGE
     Route: 048
     Dates: start: 2003, end: 2004
  4. VIAGRA [Suspect]
     Active Substance: SILDENAFIL CITRATE
     Indication: ERECTILE DYSFUNCTION
     Dosage: 50 MG (100 MG TABLETS- TAKE HALF), APPROXIMATELY 2 TIMES PER WEEK ON AVERAGE
     Route: 048
     Dates: start: 199905, end: 2001
  5. SILDENAFIL CITRATE. [Suspect]
     Active Substance: SILDENAFIL CITRATE
     Indication: ERECTILE DYSFUNCTION
     Dosage: 100 MG, APPROXIMATELY ONCE A WEEK ON AVERAGE
     Dates: start: 2010, end: 2016
  6. VIAGRA [Suspect]
     Active Substance: SILDENAFIL CITRATE
     Dosage: 50 MG (100 MG TABLETS- TAKE HALF), APPROXIMATELY 2 TIMES PER WEEK ON AVERAGE
     Route: 048
     Dates: start: 2005, end: 2006

REACTIONS (3)
  - Malignant melanoma [Unknown]
  - Emotional distress [Unknown]
  - Anxiety [Unknown]

NARRATIVE: CASE EVENT DATE: 20090326
